FAERS Safety Report 6403043-1 (Version None)
Quarter: 2009Q4

REPORT INFORMATION
  Report Type: 
  Country: None (occurrence: None)
  Receive Date: 20091013
  Receipt Date: 20091006
  Transmission Date: 20100525
  Serious: Yes (Death, Life-Threatening, Other)
  Sender: FDA-Public Use
  Company Number: SPV1-2009-01404

PATIENT
  Age: 52 Year
  Sex: Male

DRUGS (5)
  1. FOSRENOL [Suspect]
     Indication: HYPERPHOSPHATAEMIA
     Dosage: ORAL
     Route: 048
     Dates: start: 20090617, end: 20090702
  2. ADALAT CC [Concomitant]
  3. OMEPRAZOLE [Concomitant]
  4. CALCIUM CARBONATE [Concomitant]
  5. ALLOPURINOL [Concomitant]

REACTIONS (20)
  - ARTERIOSCLEROSIS [None]
  - COLITIS ISCHAEMIC [None]
  - DEHYDRATION [None]
  - DIALYSIS [None]
  - DRUG ADMINISTRATION ERROR [None]
  - GASTROINTESTINAL HAEMORRHAGE [None]
  - GASTROINTESTINAL ISCHAEMIA [None]
  - GENERAL PHYSICAL HEALTH DETERIORATION [None]
  - HYPERTROPHIC CARDIOMYOPATHY [None]
  - LOSS OF CONSCIOUSNESS [None]
  - MALABSORPTION [None]
  - MEDICATION RESIDUE [None]
  - NEPHROTIC SYNDROME [None]
  - PULMONARY CONGESTION [None]
  - RENAL FAILURE CHRONIC [None]
  - RENAL IMPAIRMENT [None]
  - SEPTIC SHOCK [None]
  - SPLEEN CONGESTION [None]
  - WRONG TECHNIQUE IN DRUG USAGE PROCESS [None]
  - X-RAY ABNORMAL [None]
